FAERS Safety Report 8472447-8 (Version None)
Quarter: 2012Q2

REPORT INFORMATION
  Report Type: 
  Country: None (occurrence: None)
  Receive Date: 20120627
  Receipt Date: 20120116
  Transmission Date: 20120825
  Serious: Yes (Other)
  Sender: FDA-Public Use
  Company Number: US-AMGEN-USASP2012011457

PATIENT
  Age: 46 Year
  Sex: Male
  Weight: 161 kg

DRUGS (7)
  1. RIBAVIRIN [Concomitant]
     Indication: HEPATITIS C
     Dosage: 600 MG, BID
     Route: 048
     Dates: start: 20111001, end: 20111116
  2. EPOETIN ALFA [Suspect]
     Indication: PRODUCT USED FOR UNKNOWN INDICATION
     Dosage: 40000 IU, UNK
     Dates: start: 20111121, end: 20111220
  3. PEGASYS [Concomitant]
     Indication: HEPATITIS
     Dosage: 180 MUG, QWK
     Route: 058
     Dates: start: 20111001
  4. INCIVEK [Suspect]
     Indication: HEPATITIS
     Dosage: 750 MG, Q8H
     Route: 048
     Dates: start: 20111001, end: 20111116
  5. EPOETIN ALFA [Suspect]
     Dosage: 60000 IU, UNK
     Dates: start: 20111220
  6. INCIVEK [Suspect]
     Dosage: 750 MG, Q8H
     Dates: start: 20111123
  7. RIBAVIRIN [Concomitant]
     Dosage: UNK, BID
     Dates: start: 20111123

REACTIONS (1)
  - ANAEMIA [None]
